FAERS Safety Report 21065496 (Version 5)
Quarter: 2022Q4

REPORT INFORMATION
  Report Type: Spontaneous
  Country: AU (occurrence: AU)
  Receive Date: 20220711
  Receipt Date: 20221121
  Transmission Date: 20230112
  Serious: Yes (Hospitalization)
  Sender: FDA-Public Use
  Company Number: AU-MYLANLABS-2022M1041031

PATIENT
  Age: 26 Year
  Sex: Female

DRUGS (19)
  1. CLOZARIL [Suspect]
     Active Substance: CLOZAPINE
     Indication: Schizophrenia
     Dosage: 250 MILLIGRAM
     Route: 048
     Dates: start: 20220524
  2. CLOZARIL [Suspect]
     Active Substance: CLOZAPINE
     Indication: Psychotic symptom
     Dosage: 250 MILLIGRAM, QD
     Route: 048
     Dates: start: 20220518, end: 20220704
  3. OLANZAPINE [Suspect]
     Active Substance: OLANZAPINE
     Indication: Emotional disorder
     Dosage: UNK
     Route: 048
     Dates: start: 20201003, end: 20220530
  4. OLANZAPINE [Suspect]
     Active Substance: OLANZAPINE
     Indication: Thinking abnormal
     Dosage: UNK
     Route: 048
     Dates: start: 20220813, end: 20220823
  5. ARIPIPRAZOLE [Suspect]
     Active Substance: ARIPIPRAZOLE
     Indication: Thinking abnormal
     Dosage: 20 MILLIGRAM, QD
     Route: 048
     Dates: start: 20210623, end: 20220505
  6. ARIPIPRAZOLE [Suspect]
     Active Substance: ARIPIPRAZOLE
     Indication: Affective disorder
  7. ARIPIPRAZOLE [Suspect]
     Active Substance: ARIPIPRAZOLE
     Indication: Behaviour disorder
  8. ARIPIPRAZOLE [Suspect]
     Active Substance: ARIPIPRAZOLE
     Indication: Thinking abnormal
     Dosage: 400 MILLIGRAM, MONTHLY
     Route: 065
     Dates: start: 20210623, end: 20220505
  9. ARIPIPRAZOLE [Suspect]
     Active Substance: ARIPIPRAZOLE
     Indication: Affective disorder
  10. ARIPIPRAZOLE [Suspect]
     Active Substance: ARIPIPRAZOLE
     Indication: Behaviour disorder
  11. AMISULPRIDE [Suspect]
     Active Substance: AMISULPRIDE
     Indication: Thinking abnormal
     Dosage: 600 MILLIGRAM, BID
     Route: 048
     Dates: start: 20220819, end: 20220821
  12. AMISULPRIDE [Suspect]
     Active Substance: AMISULPRIDE
     Indication: Affective disorder
  13. AMISULPRIDE [Suspect]
     Active Substance: AMISULPRIDE
     Indication: Behaviour disorder
  14. ZUCLOPENTHIXOL [Suspect]
     Active Substance: ZUCLOPENTHIXOL
     Indication: Thinking abnormal
     Dosage: 400 MILLIGRAM, Q2W
     Route: 065
     Dates: start: 20220610
  15. ZUCLOPENTHIXOL [Suspect]
     Active Substance: ZUCLOPENTHIXOL
     Indication: Affective disorder
  16. ZUCLOPENTHIXOL [Suspect]
     Active Substance: ZUCLOPENTHIXOL
     Indication: Behaviour disorder
  17. LURASIDONE [Concomitant]
     Active Substance: LURASIDONE
     Indication: Psychotic symptom
     Dosage: 80 MILLIGRAM, BID
     Route: 048
  18. OLANZAPINE [Concomitant]
     Active Substance: OLANZAPINE
     Dosage: 5 MILLIGRAM, NOCTE
     Route: 048
  19. ESCITALOPRAM [Concomitant]
     Active Substance: ESCITALOPRAM OXALATE
     Dosage: 10 MILLIGRAM, MANE
     Route: 048

REACTIONS (9)
  - Hospitalisation [Unknown]
  - Red cell distribution width increased [Unknown]
  - White blood cell count decreased [Recovered/Resolved]
  - Neutrophil count decreased [Recovered/Resolved]
  - Mental disorder [Unknown]
  - General physical health deterioration [Unknown]
  - Psychotic disorder [Unknown]
  - Extrapyramidal disorder [Unknown]
  - Drug ineffective [Unknown]

NARRATIVE: CASE EVENT DATE: 20220525
